FAERS Safety Report 7690018-8 (Version None)
Quarter: 2011Q3

REPORT INFORMATION
  Report Type: 
  Country: None (occurrence: None)
  Receive Date: 20110818
  Receipt Date: 20110806
  Transmission Date: 20111222
  Serious: Yes (Other)
  Sender: FDA-Public Use
  Company Number: PL-PAR PHARMACEUTICAL, INC-2011SCPR003173

PATIENT

DRUGS (2)
  1. RANITIDINE [Suspect]
     Indication: PRODUCT USED FOR UNKNOWN INDICATION
     Dosage: UNK, UNKNOWN
     Route: 065
  2. ALCOHOL [Suspect]
     Indication: PRODUCT USED FOR UNKNOWN INDICATION
     Dosage: UNK, UNKNOWN
     Route: 065

REACTIONS (5)
  - ALCOHOL INTERACTION [None]
  - DEPRESSED LEVEL OF CONSCIOUSNESS [None]
  - CONFUSIONAL STATE [None]
  - DIZZINESS [None]
  - MALAISE [None]
